FAERS Safety Report 7372701-7 (Version None)
Quarter: 2011Q1

REPORT INFORMATION
  Report Type: 
  Country: None (occurrence: None)
  Receive Date: 20110315
  Receipt Date: 20110304
  Transmission Date: 20110831
  Serious: Yes (Hospitalization)
  Sender: FDA-Public Use
  Company Number: DAV-AE-AMP-11-004

PATIENT
  Age: 11 Year
  Sex: Female

DRUGS (4)
  1. AMPICILLIN [Suspect]
     Indication: APPENDICITIS
  2. AMIKACIN [Concomitant]
  3. SULBACTAM [Concomitant]
  4. CLINDAMYCIN [Concomitant]

REACTIONS (5)
  - RASH ERYTHEMATOUS [None]
  - WHITE BLOOD CELL COUNT INCREASED [None]
  - PYREXIA [None]
  - RASH PUSTULAR [None]
  - RASH MACULO-PAPULAR [None]
